FAERS Safety Report 7619940-5 (Version None)
Quarter: 2011Q3

REPORT INFORMATION
  Report Type: 
  Country: None (occurrence: None)
  Receive Date: 20110719
  Receipt Date: 20110708
  Transmission Date: 20111222
  Serious: Yes (Other)
  Sender: FDA-Public Use
  Company Number: US-BAXTER-2011BH018698

PATIENT
  Age: 52 Year
  Sex: Male

DRUGS (3)
  1. FENTANYL CITRATE [Suspect]
     Indication: ANAESTHESIA
     Route: 042
     Dates: start: 20110607
  2. PROPOFOL [Concomitant]
     Indication: INDUCTION OF ANAESTHESIA
     Route: 065
     Dates: start: 20110607
  3. MIDAZOLAM HCL [Concomitant]
     Indication: INDUCTION OF ANAESTHESIA
     Route: 065
     Dates: start: 20110607

REACTIONS (1)
  - DRUG EFFECT INCREASED [None]
